FAERS Safety Report 5827377-4 (Version None)
Quarter: 2008Q3

REPORT INFORMATION
  Report Type: 
  Country: None (occurrence: None)
  Receive Date: 20080730
  Receipt Date: 20080721
  Transmission Date: 20090109
  Serious: Yes (Other)
  Sender: FDA-Public Use
  Company Number: GB-TEVA-174666ISR

PATIENT
  Age: 80 Year
  Sex: Female

DRUGS (7)
  1. AMITRIPTYLINE HCL [Interacting]
     Indication: DEPRESSION
  2. PRAVASTATIN [Interacting]
     Indication: HYPERCHOLESTEROLAEMIA
  3. DICLOFENAC SODIUM [Suspect]
  4. ACETYLSALICYLIC ACID SRT [Concomitant]
  5. LEVOTHYROXINE SODIUM [Concomitant]
  6. ATENOLOL [Concomitant]
  7. MISOPROSTOL [Suspect]

REACTIONS (2)
  - COLITIS [None]
  - DRUG INTERACTION [None]
